FAERS Safety Report 15358506 (Version 1)
Quarter: 2018Q3

REPORT INFORMATION
  Report Type: Spontaneous
  Country: IT (occurrence: IT)
  Receive Date: 20180906
  Receipt Date: 20180906
  Transmission Date: 20181010
  Serious: Yes (Other)
  Sender: FDA-Public Use
  Company Number: PHHY2017IT130880

PATIENT
  Age: 13 Year
  Sex: Female

DRUGS (12)
  1. ARIPIPRAZOLE. [Suspect]
     Active Substance: ARIPIPRAZOLE
     Indication: PSYCHIATRIC SYMPTOM
  2. QUETIAPINE. [Suspect]
     Active Substance: QUETIAPINE
     Indication: MOOD SWINGS
  3. QUETIAPINE. [Suspect]
     Active Substance: QUETIAPINE
     Indication: AGGRESSION
  4. ARIPIPRAZOLE. [Suspect]
     Active Substance: ARIPIPRAZOLE
     Indication: INTELLECTUAL DISABILITY
  5. QUETIAPINE. [Suspect]
     Active Substance: QUETIAPINE
     Indication: PSYCHIATRIC SYMPTOM
     Dosage: 100 MG, QD
     Route: 065
  6. TOPIRAMATE. [Suspect]
     Active Substance: TOPIRAMATE
     Indication: PSYCHIATRIC SYMPTOM
     Dosage: UNK
     Route: 065
  7. RISPERIDONE. [Suspect]
     Active Substance: RISPERIDONE
     Indication: PSYCHIATRIC SYMPTOM
     Dosage: .5 MG,QD
     Route: 065
  8. ARIPIPRAZOLE. [Suspect]
     Active Substance: ARIPIPRAZOLE
     Indication: NEUROPSYCHIATRIC SYMPTOMS
  9. ARIPIPRAZOLE. [Suspect]
     Active Substance: ARIPIPRAZOLE
     Indication: AFFECTIVE DISORDER
     Dosage: 7.5 MG,QD
     Route: 065
  10. VALPROATE SODIUM. [Suspect]
     Active Substance: VALPROATE SODIUM
     Indication: PSYCHIATRIC SYMPTOM
     Dosage: 7.5 MG, UNK
     Route: 065
  11. RISPERIDONE. [Suspect]
     Active Substance: RISPERIDONE
     Dosage: 2 MG,QD
     Route: 065
  12. QUETIAPINE. [Suspect]
     Active Substance: QUETIAPINE
     Indication: AFFECTIVE DISORDER
     Dosage: 300 MG, QD
     Route: 048

REACTIONS (10)
  - Condition aggravated [Recovering/Resolving]
  - Psychiatric symptom [Unknown]
  - Dyskinesia [Recovered/Resolved]
  - Tardive dyskinesia [Recovered/Resolved]
  - Lip disorder [Recovered/Resolved]
  - Dysarthria [Recovered/Resolved]
  - Disease recurrence [Unknown]
  - Oromandibular dystonia [Recovered/Resolved]
  - Treatment failure [Unknown]
  - Drug ineffective [Unknown]
